FAERS Safety Report 7994696-5 (Version None)
Quarter: 2011Q4

REPORT INFORMATION
  Report Type: 
  Country: None (occurrence: None)
  Receive Date: 20111220
  Receipt Date: 20111205
  Transmission Date: 20120403
  Serious: Yes (Death)
  Sender: FDA-Public Use
  Company Number: PHHY2011US110252

PATIENT
  Age: 48 Year
  Sex: Male

DRUGS (4)
  1. BETA BLOCKING AGENTS [Suspect]
  2. CITALOPRAM [Suspect]
     Route: 048
  3. LAMOTRIGINE [Suspect]
  4. CLOZAPINE [Suspect]
     Route: 048

REACTIONS (2)
  - DRUG LEVEL INCREASED [None]
  - COMPLETED SUICIDE [None]
